FAERS Safety Report 5565423-6 (Version None)
Quarter: 2007Q4

REPORT INFORMATION
  Report Type: 
  Country: None (occurrence: None)
  Receive Date: 20071218
  Receipt Date: 20071206
  Transmission Date: 20080405
  Serious: Yes (Other)
  Sender: FDA-Public Use
  Company Number: CR-AMGEN-US255866

PATIENT
  Sex: Male

DRUGS (2)
  1. PANITUMUMAB [Suspect]
     Indication: COLORECTAL CANCER
     Route: 042
     Dates: start: 20070829
  2. FLUOROURACIL [Suspect]

REACTIONS (2)
  - HAEMORRHOIDS [None]
  - PERIANAL ABSCESS [None]
